FAERS Safety Report 11195059 (Version 1)
Quarter: 2015Q2

REPORT INFORMATION
  Report Type: Spontaneous
  Country: None (occurrence: None)
  Receive Date: 20150615
  Receipt Date: 20150615
  Transmission Date: 20150821
  Serious: No
  Sender: FDA-Public Use
  Company Number: None

PATIENT
  Sex: Male
  Weight: 59.42 kg

DRUGS (1)
  1. ARIPIPRAZOLE 5MG [Suspect]
     Active Substance: ARIPIPRAZOLE
     Route: 048

REACTIONS (5)
  - Irritability [None]
  - Anger [None]
  - Fear [None]
  - Increased appetite [None]
  - Product substitution issue [None]
